FAERS Safety Report 6222059-1 (Version None)
Quarter: 2009Q2

REPORT INFORMATION
  Report Type: 
  Country: None (occurrence: None)
  Receive Date: 20090608
  Receipt Date: 20090608
  Transmission Date: 20091009
  Serious: Yes (Other)
  Sender: FDA-Public Use
  Company Number: None

PATIENT
  Sex: Female
  Weight: 95.709 kg

DRUGS (1)
  1. ZOLOFT [Suspect]
     Indication: ANXIETY
     Dosage: 50 MGS 1PER DAY PO
     Route: 048
     Dates: start: 20090527, end: 20090604

REACTIONS (9)
  - ANXIETY [None]
  - CONTUSION [None]
  - DEHYDRATION [None]
  - DIARRHOEA [None]
  - HYPERTHERMIA [None]
  - NAUSEA [None]
  - PANIC ATTACK [None]
  - PYREXIA [None]
  - TREMOR [None]
